FAERS Safety Report 12836909 (Version 2)
Quarter: 2017Q3

REPORT INFORMATION
  Report Type: Spontaneous
  Country: US (occurrence: US)
  Receive Date: 20161011
  Receipt Date: 20170809
  Transmission Date: 20171127
  Serious: Yes (Other)
  Sender: FDA-Public Use
  Company Number: US-CELGENEUS-USA-2016101096

PATIENT
  Age: 73 Year
  Sex: Female

DRUGS (2)
  1. REVLIMID [Suspect]
     Active Substance: LENALIDOMIDE
     Indication: PLASMA CELL MYELOMA
     Route: 048
  2. DEXAMETHASONE. [Suspect]
     Active Substance: DEXAMETHASONE
     Indication: PLASMA CELL MYELOMA
     Route: 065

REACTIONS (15)
  - Dizziness [Recovered/Resolved]
  - Hypokalaemia [Not Recovered/Not Resolved]
  - Lacrimation increased [Recovered/Resolved]
  - Contusion [Not Recovered/Not Resolved]
  - Dizziness [Recovered/Resolved]
  - Neutropenia [Recovered/Resolved]
  - Confusional state [Not Recovered/Not Resolved]
  - Hyperglycaemia [Recovered/Resolved]
  - Memory impairment [Recovered/Resolved]
  - Lacrimation increased [Recovered/Resolved]
  - Dysgeusia [Not Recovered/Not Resolved]
  - Anaemia [Recovered/Resolved]
  - Memory impairment [Recovered/Resolved]
  - Hyperglycaemia [Not Recovered/Not Resolved]
  - Confusional state [Recovered/Resolved]

NARRATIVE: CASE EVENT DATE: 20160407
